FAERS Safety Report 13803605 (Version 1)
Quarter: 2017Q3

REPORT INFORMATION
  Report Type: Spontaneous
  Country: DE (occurrence: DE)
  Receive Date: 20170728
  Receipt Date: 20170728
  Transmission Date: 20171127
  Serious: Yes (Other)
  Sender: FDA-Public Use
  Company Number: DE-PFIZER INC-2017323298

PATIENT
  Age: 31 Year
  Sex: Female

DRUGS (3)
  1. VENLAFAXINE HCL [Suspect]
     Active Substance: VENLAFAXINE HYDROCHLORIDE
     Dosage: 37.5 MG, DURING THE 3RD TRIMESTER EVERY 3RD DAY
     Route: 048
     Dates: end: 20170223
  2. FEMIBION [Concomitant]
     Active Substance: VITAMINS
     Indication: PROPHYLAXIS OF NEURAL TUBE DEFECT
     Route: 048
  3. VENLAFAXINE HCL [Suspect]
     Active Substance: VENLAFAXINE HYDROCHLORIDE
     Indication: DEPRESSION
     Dosage: 37.5 MG, EVERY SECOND DAY
     Route: 048
     Dates: start: 20160527

REACTIONS (1)
  - Iron deficiency [Unknown]
